FAERS Safety Report 20616177 (Version 1)
Quarter: 2022Q1

REPORT INFORMATION
  Report Type: Spontaneous
  Country: US (occurrence: US)
  Receive Date: 20220321
  Receipt Date: 20220321
  Transmission Date: 20220423
  Serious: Yes (Other)
  Sender: FDA-Public Use
  Company Number: US-GLAXOSMITHKLINE-US2022GSK047399

PATIENT
  Age: 22 Year
  Sex: Female

DRUGS (2)
  1. BUPROPION [Suspect]
     Active Substance: BUPROPION
     Indication: Depression
     Dosage: UNK
  2. ESCITALOPRAM [Concomitant]
     Active Substance: ESCITALOPRAM OXALATE
     Indication: Depression
     Dosage: UNK

REACTIONS (14)
  - Drug reaction with eosinophilia and systemic symptoms [Recovered/Resolved]
  - Rash [Recovered/Resolved]
  - Pharyngitis [Unknown]
  - Pyrexia [Unknown]
  - Myalgia [Unknown]
  - Rash pruritic [Recovered/Resolved]
  - Rash erythematous [Recovered/Resolved]
  - Macule [Recovered/Resolved]
  - Skin plaque [Recovered/Resolved]
  - Transaminases increased [Unknown]
  - Pleural effusion [Unknown]
  - Abdominal lymphadenopathy [Unknown]
  - Eosinophilia [Unknown]
  - Treatment noncompliance [Unknown]
